FAERS Safety Report 16238622 (Version 1)
Quarter: 2019Q2

REPORT INFORMATION
  Report Type: Spontaneous
  Country: US (occurrence: US)
  Receive Date: 20190321
  Receipt Date: 20190321
  Transmission Date: 20190711
  Serious: No
  Sender: FDA-Public Use
  Company Number: None

PATIENT

DRUGS (3)
  1. SODIUM CHLORIDE 7% [Suspect]
     Active Substance: SODIUM CHLORIDE
     Dosage: ?          OTHER FREQUENCY:Q12H;?
     Route: 045
     Dates: start: 20190215
  2. COMPLETE FORMULATION D, 3000 [Concomitant]
  3. CREON [Concomitant]
     Active Substance: PANCRELIPASE AMYLASE\PANCRELIPASE LIPASE\PANCRELIPASE PROTEASE

REACTIONS (2)
  - Condition aggravated [None]
  - Lung disorder [None]

NARRATIVE: CASE EVENT DATE: 20190311
